FAERS Safety Report 9348221 (Version 2)
Quarter: 2013Q3

REPORT INFORMATION
  Report Type: Spontaneous
  Country: US (occurrence: US)
  Receive Date: 20130614
  Receipt Date: 20130730
  Transmission Date: 20140515
  Serious: Yes (Hospitalization)
  Sender: FDA-Public Use
  Company Number: US-BAYER-2013-071634

PATIENT
  Age: 37 Year
  Sex: Female
  Weight: 76.19 kg

DRUGS (14)
  1. YASMIN [Suspect]
  2. ZOFRAN [Concomitant]
     Dosage: UNK
     Route: 042
     Dates: start: 20101208
  3. PROTONIX [Concomitant]
     Dosage: UNK
     Route: 042
     Dates: start: 20101208
  4. LISINOPRIL [Concomitant]
     Dosage: 10 MG, UNK
     Route: 048
  5. METFORMIN [Concomitant]
     Dosage: 1000 MG, UNK
  6. GLYBURIDE [Concomitant]
     Dosage: 2.5 MG, UNK
  7. SIMVASTATIN [Concomitant]
     Dosage: 10 MG, UNK
  8. LOPID [Concomitant]
     Dosage: 600 MG, UNK
     Route: 048
  9. ADVAIR DISKUS [Concomitant]
     Dosage: 500/50, INHALER
  10. SINGULAIR [Concomitant]
     Dosage: 10 MG, UNK
  11. FLONASE [Concomitant]
     Dosage: 0.05 UNK, UNK
  12. ZANTAC [Concomitant]
     Dosage: 150 MG, UNK
     Route: 048
  13. MOTRIN [Concomitant]
     Dosage: 400 MG, UNK
     Route: 048
  14. ZYRTEC [Concomitant]
     Dosage: 10 MG, UNK
     Route: 048

REACTIONS (2)
  - Mesenteric vein thrombosis [None]
  - Splenic vein thrombosis [None]
